FAERS Safety Report 7002637-2 (Version None)
Quarter: 2010Q3

REPORT INFORMATION
  Report Type: 
  Country: None (occurrence: None)
  Receive Date: 20100920
  Receipt Date: 20091203
  Transmission Date: 20110219
  Serious: No
  Sender: FDA-Public Use
  Company Number: US-ASTRAZENECA-2007UW12847

PATIENT
  Age: 636 Month
  Sex: Male
  Weight: 92.1 kg

DRUGS (27)
  1. SEROQUEL [Suspect]
     Indication: SLEEP DISORDER
     Dosage: 100 MG TO 200 MG DAILY
     Route: 048
     Dates: start: 20051110, end: 20051210
  2. SEROQUEL [Suspect]
     Indication: DEPRESSION
     Dosage: 100 MG TO 200 MG DAILY
     Route: 048
     Dates: start: 20051110, end: 20051210
  3. SEROQUEL [Suspect]
     Indication: SCHIZOPHRENIA
     Dosage: 100 MG TO 200 MG DAILY
     Route: 048
     Dates: start: 20051110, end: 20051210
  4. SEROQUEL [Suspect]
     Dosage: 25 MG - 200 MG
     Route: 048
     Dates: start: 20051110
  5. SEROQUEL [Suspect]
     Dosage: 25 MG - 200 MG
     Route: 048
     Dates: start: 20051110
  6. SEROQUEL [Suspect]
     Dosage: 25 MG - 200 MG
     Route: 048
     Dates: start: 20051110
  7. SEROQUEL [Suspect]
     Route: 048
     Dates: start: 20060214, end: 20060316
  8. SEROQUEL [Suspect]
     Route: 048
     Dates: start: 20060214, end: 20060316
  9. SEROQUEL [Suspect]
     Route: 048
     Dates: start: 20060214, end: 20060316
  10. SEROQUEL [Suspect]
     Route: 048
     Dates: start: 20060615, end: 20070117
  11. SEROQUEL [Suspect]
     Route: 048
     Dates: start: 20060615, end: 20070117
  12. SEROQUEL [Suspect]
     Route: 048
     Dates: start: 20060615, end: 20070117
  13. SEROQUEL [Suspect]
     Route: 048
  14. SEROQUEL [Suspect]
     Route: 048
  15. SEROQUEL [Suspect]
     Route: 048
  16. RISPERDAL [Concomitant]
  17. ZYPREXA [Concomitant]
     Dates: start: 20000621, end: 20001109
  18. ZYPREXA [Concomitant]
     Dates: start: 20010110, end: 20010319
  19. ABILIFY [Concomitant]
     Dates: start: 20060712
  20. ABILIFY [Concomitant]
     Dates: start: 20070412, end: 20070607
  21. GEODON [Concomitant]
     Dates: start: 20070101
  22. HALDOL [Concomitant]
     Dates: start: 19970101
  23. THORAZINE [Concomitant]
     Dates: start: 19970101
  24. LOTREL [Concomitant]
     Dosage: 5/20, DAILY
     Dates: start: 20060530
  25. ATACAND [Concomitant]
     Route: 048
     Dates: start: 20020612
  26. DIAZEPAM [Concomitant]
     Route: 048
     Dates: start: 20060511
  27. ATENOLOL [Concomitant]
     Dates: start: 20060310

REACTIONS (5)
  - DIABETES MELLITUS [None]
  - GLUCOSE TOLERANCE IMPAIRED [None]
  - OBESITY [None]
  - TYPE 2 DIABETES MELLITUS [None]
  - WEIGHT INCREASED [None]
